FAERS Safety Report 18343226 (Version 5)
Quarter: 2021Q1

REPORT INFORMATION
  Report Type: Spontaneous
  Country: US (occurrence: US)
  Receive Date: 20201005
  Receipt Date: 20210115
  Transmission Date: 20210419
  Serious: Yes (Other)
  Sender: FDA-Public Use
  Company Number: US-BAYER-2020-209545

PATIENT
  Age: 45 Year
  Sex: Male

DRUGS (7)
  1. JIVI [Suspect]
     Active Substance: DAMOCTOCOG ALFA PEGOL
     Dosage: 3132 UN IV, 2 DF, TO TREAT RIGHT ARM BLEED
     Route: 042
     Dates: start: 20201106, end: 20201108
  2. JIVI [Suspect]
     Active Substance: DAMOCTOCOG ALFA PEGOL
     Dosage: 1 DF; TO TREAT RIGHT ELBOW, KNEE, LEFT ANKLE, AND ENDSCOPY
     Route: 042
  3. JIVI [Suspect]
     Active Substance: DAMOCTOCOG ALFA PEGOL
     Dosage: 3132 UNITS, FOR EVENT TREATMENT
     Route: 042
     Dates: start: 20200913, end: 20200913
  4. JIVI [Suspect]
     Active Substance: DAMOCTOCOG ALFA PEGOL
     Dosage: 3000 U, FOR PROPHYLAXIS OF OUTPATIENT PROCEDURE
     Route: 042
  5. JIVI [Suspect]
     Active Substance: DAMOCTOCOG ALFA PEGOL
     Dosage: UNK
     Route: 042
  6. JIVI [Suspect]
     Active Substance: DAMOCTOCOG ALFA PEGOL
     Dosage: 3157 UN IV, ONCE, FOR TREATMENT OF RIGHT ELBOW BLEED
     Route: 042
  7. JIVI [Suspect]
     Active Substance: DAMOCTOCOG ALFA PEGOL
     Dosage: 3000 UNITS, TO PREVENT A BLEED
     Route: 042
     Dates: start: 20201018, end: 20201018

REACTIONS (7)
  - Haemorrhage [Recovered/Resolved]
  - Haemorrhage [Recovered/Resolved]
  - Medical procedure [Recovered/Resolved]
  - Haemarthrosis [None]
  - Haemarthrosis [None]
  - Endoscopy [None]
  - Haemarthrosis [None]

NARRATIVE: CASE EVENT DATE: 20200913
